FAERS Safety Report 8780362 (Version 1)
Quarter: 2012Q4

REPORT INFORMATION
  Report Type: Spontaneous
  Country: ES (occurrence: None)
  Receive Date: 20120828
  Receipt Date: 20120828
  Transmission Date: 20130627
  Serious: Yes (Hospitalization, Other)
  Sender: FDA-Public Use
  Company Number: EU-2012-10116

PATIENT
  Sex: Female
  Weight: 68 kg

DRUGS (35)
  1. SAMSCA (TOLVAPTAN) TABLET [Suspect]
     Indication: SIADH
     Route: 048
     Dates: start: 20111017, end: 20111017
  2. SAMSCA (TOLVAPTAN) TABLET [Suspect]
     Indication: HYPONATREMIA
     Route: 048
     Dates: start: 20111017, end: 20111017
  3. SAMSCA (TOLVAPTAN) TABLET [Suspect]
     Indication: NEOPLASM
     Route: 048
     Dates: start: 20111017, end: 20111017
  4. SAMSCA (TOLVAPTAN) TABLET [Suspect]
     Indication: SIADH
     Route: 048
     Dates: start: 20111018, end: 20111018
  5. SAMSCA (TOLVAPTAN) TABLET [Suspect]
     Indication: HYPONATREMIA
     Route: 048
     Dates: start: 20111018, end: 20111018
  6. SAMSCA (TOLVAPTAN) TABLET [Suspect]
     Indication: NEOPLASM
     Route: 048
     Dates: start: 20111018, end: 20111018
  7. SAMSCA (TOLVAPTAN) TABLET [Suspect]
     Indication: SIADH
     Route: 048
     Dates: start: 20111028, end: 20111201
  8. SAMSCA (TOLVAPTAN) TABLET [Suspect]
     Indication: HYPONATREMIA
     Route: 048
     Dates: start: 20111028, end: 20111201
  9. SAMSCA (TOLVAPTAN) TABLET [Suspect]
     Indication: NEOPLASM
     Route: 048
     Dates: start: 20111028, end: 20111201
  10. SAMSCA (TOLVAPTAN) TABLET [Suspect]
     Indication: SIADH
     Route: 048
     Dates: start: 20111202, end: 20111213
  11. SAMSCA (TOLVAPTAN) TABLET [Suspect]
     Indication: HYPONATREMIA
     Route: 048
     Dates: start: 20111202, end: 20111213
  12. SAMSCA (TOLVAPTAN) TABLET [Suspect]
     Indication: NEOPLASM
     Route: 048
     Dates: start: 20111202, end: 20111213
  13. SAMSCA (TOLVAPTAN) TABLET [Suspect]
     Indication: SIADH
     Route: 048
     Dates: start: 20111214, end: 20111228
  14. SAMSCA (TOLVAPTAN) TABLET [Suspect]
     Indication: HYPONATREMIA
     Route: 048
     Dates: start: 20111214, end: 20111228
  15. SAMSCA (TOLVAPTAN) TABLET [Suspect]
     Indication: NEOPLASM
     Route: 048
     Dates: start: 20111214, end: 20111228
  16. SAMSCA (TOLVAPTAN) TABLET [Suspect]
     Indication: SIADH
     Route: 048
     Dates: start: 20120119, end: 20120119
  17. SAMSCA (TOLVAPTAN) TABLET [Suspect]
     Indication: HYPONATREMIA
     Route: 048
     Dates: start: 20120119, end: 20120119
  18. SAMSCA (TOLVAPTAN) TABLET [Suspect]
     Indication: NEOPLASM
     Route: 048
     Dates: start: 20120119, end: 20120119
  19. SAMSCA (TOLVAPTAN) TABLET [Suspect]
     Indication: SIADH
     Route: 048
     Dates: start: 20120120, end: 20120224
  20. SAMSCA (TOLVAPTAN) TABLET [Suspect]
     Indication: HYPONATREMIA
     Route: 048
     Dates: start: 20120120, end: 20120224
  21. SAMSCA (TOLVAPTAN) TABLET [Suspect]
     Indication: NEOPLASM
     Route: 048
     Dates: start: 20120120, end: 20120224
  22. SAMSCA (TOLVAPTAN) TABLET [Suspect]
     Indication: SIADH
     Route: 048
     Dates: start: 20120224, end: 20120309
  23. SAMSCA (TOLVAPTAN) TABLET [Suspect]
     Indication: HYPONATREMIA
     Route: 048
     Dates: start: 20120224, end: 20120309
  24. SAMSCA (TOLVAPTAN) TABLET [Suspect]
     Indication: NEOPLASM
     Route: 048
     Dates: start: 20120224, end: 20120309
  25. SAMSCA (TOLVAPTAN) TABLET [Suspect]
     Indication: SIADH
     Route: 048
     Dates: start: 20120310, end: 20120321
  26. SAMSCA (TOLVAPTAN) TABLET [Suspect]
     Indication: HYPONATREMIA
     Route: 048
     Dates: start: 20120310, end: 20120321
  27. SAMSCA (TOLVAPTAN) TABLET [Suspect]
     Indication: NEOPLASM
     Route: 048
     Dates: start: 20120310, end: 20120321
  28. SAMSCA (TOLVAPTAN) TABLET [Suspect]
     Indication: SIADH
     Route: 048
     Dates: start: 20120321
  29. SAMSCA (TOLVAPTAN) TABLET [Suspect]
     Indication: HYPONATREMIA
     Route: 048
     Dates: start: 20120321
  30. SAMSCA (TOLVAPTAN) TABLET [Suspect]
     Indication: NEOPLASM
     Route: 048
     Dates: start: 20120321
  31. HYPERTONIC DEXTROSE [Concomitant]
  32. SALT (SODIUM CHLORIDE) [Concomitant]
  33. INSULIN DETEMIR (INSULIN DETEMIR) [Concomitant]
  34. MIXTARD 30 (INSULIN HUMAN, INSULIN HUMAN INJECTION, ISOPHANE) [Concomitant]
  35. FUROSEMIDE (FUROSEMIDE) [Concomitant]

REACTIONS (10)
  - Metastases to liver [None]
  - Cholestasis [None]
  - Coma [None]
  - Rapid correction of hyponatraemia [None]
  - Drug dose omission [None]
  - Wrong technique in drug usage process [None]
  - Thirst [None]
  - Somnolence [None]
  - Blood pressure increased [None]
  - Malnutrition [None]
